FAERS Safety Report 8512751-8 (Version None)
Quarter: 2012Q3

REPORT INFORMATION
  Report Type: 
  Country: None (occurrence: None)
  Receive Date: 20120716
  Receipt Date: 20120709
  Transmission Date: 20120928
  Serious: No
  Sender: FDA-Public Use
  Company Number: US-PFIZER INC-2012145175

PATIENT
  Sex: Female
  Weight: 83.9 kg

DRUGS (4)
  1. LISINOPRIL [Concomitant]
     Indication: HYPERTENSION
     Dosage: 20 MG, DAILY
  2. LOVASTATIN [Concomitant]
     Indication: CARDIAC FAILURE CONGESTIVE
     Dosage: 10 MG, DAILY
  3. HUMALOG [Concomitant]
     Indication: DIABETES MELLITUS
     Dosage: 90 IU, DAILY
  4. VFEND [Suspect]
     Indication: ACUTE PULMONARY HISTOPLASMOSIS
     Dosage: 1 MG, 2X/DAY
     Dates: start: 20120101

REACTIONS (1)
  - BLISTER [None]
